FAERS Safety Report 12528954 (Version 1)
Quarter: 2016Q3

REPORT INFORMATION
  Report Type: Spontaneous
  Country: US (occurrence: US)
  Receive Date: 20160705
  Receipt Date: 20160705
  Transmission Date: 20161109
  Serious: Yes (Hospitalization)
  Sender: FDA-Public Use
  Company Number: US-JNJFOC-20160626657

PATIENT
  Age: 53 Year
  Sex: Female
  Weight: 68.04 kg

DRUGS (3)
  1. INVEGA SUSTENNA [Suspect]
     Active Substance: PALIPERIDONE PALMITATE
     Indication: BORDERLINE PERSONALITY DISORDER
     Route: 030
  2. INVEGA SUSTENNA [Suspect]
     Active Substance: PALIPERIDONE PALMITATE
     Indication: BORDERLINE PERSONALITY DISORDER
     Route: 030
     Dates: start: 20160624
  3. INVEGA SUSTENNA [Suspect]
     Active Substance: PALIPERIDONE PALMITATE
     Indication: BORDERLINE PERSONALITY DISORDER
     Route: 030
     Dates: start: 20160625

REACTIONS (4)
  - Off label use [Unknown]
  - Product use issue [Unknown]
  - Borderline personality disorder [Not Recovered/Not Resolved]
  - Overdose [Recovered/Resolved]

NARRATIVE: CASE EVENT DATE: 20160625
